FAERS Safety Report 14279712 (Version 1)
Quarter: 2017Q4

REPORT INFORMATION
  Report Type: Spontaneous
  Country: US (occurrence: US)
  Receive Date: 20171213
  Receipt Date: 20171213
  Transmission Date: 20180321
  Serious: No
  Sender: FDA-Public Use
  Company Number: US-AUROBINDO-AUR-APL-2017-40011

PATIENT
  Sex: Male

DRUGS (1)
  1. FINASTERIDE TABLETS USP 5MG [Suspect]
     Active Substance: FINASTERIDE
     Indication: PRODUCT USED FOR UNKNOWN INDICATION
     Dosage: 5 MG, ONCE A DAY
     Route: 048

REACTIONS (4)
  - Libido decreased [Unknown]
  - Sexual dysfunction [Unknown]
  - Gynaecomastia [Unknown]
  - Dizziness [Unknown]
